FAERS Safety Report 11456731 (Version 1)
Quarter: 2015Q3

REPORT INFORMATION
  Report Type: Report from Study
  Country: KR (occurrence: KR)
  Receive Date: 20150903
  Receipt Date: 20150903
  Transmission Date: 20151125
  Serious: Yes (Hospitalization, Other)
  Sender: FDA-Public Use
  Company Number: KR-SHIONOGI, INC-2015000946

PATIENT
  Age: 60 Year
  Sex: Female

DRUGS (36)
  1. URSA [Concomitant]
     Indication: METASTASES TO LIVER
     Dosage: UNK
     Route: 065
     Dates: start: 20150707, end: 20150730
  2. NEO MINOPHAGEN C [Concomitant]
     Indication: OVARIAN CANCER
     Dosage: UNK
     Route: 065
     Dates: start: 20150716, end: 20150716
  3. CAELYX [Concomitant]
     Active Substance: DOXORUBICIN HYDROCHLORIDE
     Indication: OVARIAN CANCER
     Dosage: UNK
     Route: 065
     Dates: start: 20150716, end: 20150716
  4. MITOMYCIN C KYOWA [Concomitant]
     Indication: OVARIAN CANCER
     Dosage: UNK
     Route: 065
     Dates: start: 20150716, end: 20150716
  5. DORIPENEM [Suspect]
     Active Substance: DORIPENEM
     Indication: ABDOMINAL INFECTION
     Dosage: 1.5 G, QD
     Route: 065
     Dates: start: 20150709, end: 20150717
  6. DORIPENEM [Suspect]
     Active Substance: DORIPENEM
     Dosage: 1.5 G, QD
     Route: 065
     Dates: start: 20150721, end: 20150726
  7. TAICONIN [Concomitant]
     Dosage: UNK
     Route: 065
     Dates: start: 20150709, end: 20150710
  8. LASIX [Concomitant]
     Active Substance: FUROSEMIDE
     Indication: ASCITES
     Dosage: UNK
     Route: 065
     Dates: start: 20150615, end: 20150726
  9. OTRON [Concomitant]
     Indication: PROPHYLAXIS OF NAUSEA AND VOMITING
     Dosage: UNK
     Route: 065
     Dates: start: 20150611, end: 20150730
  10. ABNOBAVISCUM FRAXI [Concomitant]
     Indication: OVARIAN CANCER
     Dosage: UNK
     Route: 065
     Dates: start: 20150703, end: 20150724
  11. AVELOX [Concomitant]
     Active Substance: MOXIFLOXACIN HYDROCHLORIDE
     Dosage: UNK
     Route: 065
     Dates: start: 20150710, end: 20150721
  12. MEGESTROL SERVYCAL [Concomitant]
     Indication: OVARIAN CANCER
     Dosage: UNK
     Route: 065
     Dates: start: 20150707, end: 20150730
  13. ENBREL [Concomitant]
     Active Substance: ETANERCEPT
     Indication: OVARIAN CANCER
     Dosage: UNK
     Route: 065
     Dates: start: 20150716, end: 20150716
  14. ZOMEBON [Concomitant]
     Indication: METASTASES TO BONE
     Dosage: UNK
     Route: 065
     Dates: start: 20150612, end: 20150713
  15. OXP [Concomitant]
     Indication: OVARIAN CANCER
     Dosage: UNK
     Route: 065
     Dates: start: 20150716, end: 20150716
  16. ERAXIS [Concomitant]
     Active Substance: ANIDULAFUNGIN
     Dosage: UNK
     Route: 065
     Dates: start: 20150716, end: 20150730
  17. VANCOCIN-CP [Concomitant]
     Dosage: UNK
     Route: 065
     Dates: start: 20150721, end: 20150726
  18. DEXAMETHASONE DISODIUM PHOSPHATE [Concomitant]
     Active Substance: DEXAMETHASONE SODIUM PHOSPHATE
     Indication: OVARIAN CANCER
     Dosage: UNK
     Route: 065
     Dates: start: 20150617, end: 20150728
  19. GASTER [Concomitant]
     Active Substance: FAMOTIDINE
     Indication: PROPHYLAXIS AGAINST GASTROINTESTINAL ULCER
     Dosage: UNK
     Route: 065
     Dates: start: 20150721, end: 20150729
  20. NASEA [Concomitant]
     Active Substance: RAMOSETRON HYDROCHLORIDE
     Indication: PROPHYLAXIS OF NAUSEA AND VOMITING
     Dosage: UNK
     Route: 065
     Dates: start: 20150615, end: 20150716
  21. VFEND [Concomitant]
     Active Substance: VORICONAZOLE
     Dosage: UNK
     Route: 065
     Dates: start: 20150711, end: 20150716
  22. VITAMIN K1 [Concomitant]
     Active Substance: PHYTONADIONE
     Indication: METASTASES TO LIVER
     Dosage: UNK
     Route: 065
     Dates: start: 20150721, end: 20150721
  23. GRANDPAZE S [Concomitant]
     Indication: DYSPEPSIA
     Dosage: UNK
     Route: 065
     Dates: start: 20150611, end: 20150730
  24. SANDOSTATIN [Concomitant]
     Active Substance: OCTREOTIDE ACETATE
     Dosage: UNK
     Route: 065
     Dates: start: 20150714, end: 20150717
  25. VOTRIENT [Concomitant]
     Active Substance: PAZOPANIB HYDROCHLORIDE
     Indication: OVARIAN CANCER
     Dosage: UNK
     Route: 065
     Dates: start: 20150717, end: 20150720
  26. HEPA-MERZ                          /01390204/ [Concomitant]
     Indication: METASTASES TO LIVER
     Dosage: UNK
     Route: 065
     Dates: start: 20150703, end: 20150730
  27. KETOCIN                            /01001802/ [Concomitant]
     Indication: OVARIAN CANCER
     Dosage: UNK
     Route: 065
     Dates: start: 20150615, end: 20150726
  28. PETHIDINE HCL [Concomitant]
     Indication: OVARIAN CANCER
     Dosage: UNK
     Route: 065
     Dates: start: 20150619, end: 20150723
  29. CHLORPHENIRAMINE MALEATE. [Concomitant]
     Active Substance: CHLORPHENIRAMINE MALEATE
     Indication: TRANSFUSION
     Dosage: UNK
     Route: 065
     Dates: start: 20150620, end: 20150726
  30. PACETA [Concomitant]
     Indication: PAIN
     Dosage: UNK
     Route: 065
     Dates: start: 20150620, end: 20150722
  31. DUROGESIC [Concomitant]
     Active Substance: FENTANYL
     Indication: OVARIAN CANCER
     Dosage: UNK
     Route: 065
     Dates: start: 20150617, end: 20150730
  32. NEOBON                             /00514701/ [Concomitant]
     Indication: METASTASES TO BONE
     Dosage: UNK
     Route: 065
     Dates: start: 20150716, end: 20150716
  33. 5-FLUOROURACIL                     /00098801/ [Concomitant]
     Active Substance: FLUOROURACIL
     Indication: OVARIAN CANCER
     Dosage: UNK
     Route: 065
     Dates: start: 20150716, end: 20150716
  34. LAMINA-G [Concomitant]
     Indication: PROPHYLAXIS AGAINST GASTROINTESTINAL ULCER
     Dosage: UNK
     Route: 065
     Dates: start: 20150722, end: 20150730
  35. VELCADE [Concomitant]
     Active Substance: BORTEZOMIB
     Indication: OVARIAN CANCER
     Dosage: UNK
     Route: 065
     Dates: start: 20150716, end: 20150716
  36. GEMTAN [Concomitant]
     Indication: OVARIAN CANCER
     Dosage: UNK
     Route: 065
     Dates: start: 20150716, end: 20150716

REACTIONS (2)
  - Pancytopenia [Unknown]
  - Blood bilirubin increased [Unknown]

NARRATIVE: CASE EVENT DATE: 20150710
